FAERS Safety Report 5380677-7 (Version None)
Quarter: 2007Q3

REPORT INFORMATION
  Report Type: 
  Country: None (occurrence: None)
  Receive Date: 20070706
  Receipt Date: 20070705
  Transmission Date: 20080115
  Serious: Yes (Other)
  Sender: FDA-Public Use
  Company Number: A0661584A

PATIENT
  Age: 47 Year
  Sex: Female

DRUGS (2)
  1. ALLI [Suspect]
     Indication: WEIGHT LOSS DIET
     Dosage: 3CAP PER DAY
     Route: 065
     Dates: start: 20070629, end: 20070629
  2. MULTI-VITAMIN [Concomitant]

REACTIONS (6)
  - ABDOMINAL DISTENSION [None]
  - ASTHENIA [None]
  - FEELING ABNORMAL [None]
  - NAUSEA [None]
  - RECTAL DISCHARGE [None]
  - RECTAL HAEMORRHAGE [None]
